FAERS Safety Report 6182661-2 (Version None)
Quarter: 2009Q2

REPORT INFORMATION
  Report Type: 
  Country: None (occurrence: None)
  Receive Date: 20090507
  Receipt Date: 20090428
  Transmission Date: 20091009
  Serious: Yes (Death, Life-Threatening, Hospitalization)
  Sender: FDA-Public Use
  Company Number: A0777566A

PATIENT
  Age: 72 Year
  Sex: Male
  Weight: 109 kg

DRUGS (2)
  1. ARIXTRA [Suspect]
     Indication: DEEP VEIN THROMBOSIS
     Dosage: 2.5MG PER DAY
     Route: 065
  2. REVLIMID [Concomitant]
     Indication: MULTIPLE MYELOMA

REACTIONS (11)
  - CARDIAC ARREST [None]
  - CARDIAC TAMPONADE [None]
  - DEATH [None]
  - FALL [None]
  - HAEMATOCRIT DECREASED [None]
  - HAEMOGLOBIN DECREASED [None]
  - HAEMORRHAGE [None]
  - INFECTION [None]
  - MUSCLE HAEMORRHAGE [None]
  - PAIN [None]
  - PELVIC HAEMATOMA [None]
